FAERS Safety Report 12634961 (Version 1)
Quarter: 2016Q3

REPORT INFORMATION
  Report Type: Spontaneous
  Country: US (occurrence: US)
  Receive Date: 20160809
  Receipt Date: 20160809
  Transmission Date: 20161109
  Serious: No
  Sender: FDA-Public Use
  Company Number: US-PFIZER INC-2016348934

PATIENT
  Sex: Female

DRUGS (1)
  1. TOVIAZ [Suspect]
     Active Substance: FESOTERODINE FUMARATE
     Indication: MICTURITION URGENCY
     Dosage: 8 MG, UNK (SOMETIMES IN THE MORNING AND SOMETIMES IN THE AFTERNOON)

REACTIONS (4)
  - Cystitis [Unknown]
  - Pain [Recovered/Resolved]
  - Skin odour abnormal [Unknown]
  - Burning sensation [Recovered/Resolved]
